FAERS Safety Report 8895844 (Version 1)
Quarter: 2012Q4

REPORT INFORMATION
  Report Type: 
  Country: US (occurrence: US)
  Receive Date: 20121108
  Receipt Date: 20121108
  Transmission Date: 20130627
  Serious: Yes (Hospitalization)
  Sender: FDA-Public Use
  Company Number: GXBR2012US002258

PATIENT
  Sex: Female

DRUGS (1)
  1. METFORMIN [Suspect]
     Dosage: 1000 mg, UNK

REACTIONS (4)
  - Gastroenteritis viral [Unknown]
  - Diarrhoea [Unknown]
  - Dehydration [Unknown]
  - Loss of consciousness [Unknown]
